FAERS Safety Report 7824726-2 (Version None)
Quarter: 2011Q4

REPORT INFORMATION
  Report Type: 
  Country: None (occurrence: None)
  Receive Date: 20111019
  Receipt Date: 20111013
  Transmission Date: 20120403
  Serious: Yes (Death, Hospitalization)
  Sender: FDA-Public Use
  Company Number: PHHY2008NL37309

PATIENT
  Sex: Female
  Weight: 57 kg

DRUGS (2)
  1. SANDOSTATIN LAR [Suspect]
     Dosage: 20 MG, ONCE PER 3 WEEKS
     Dates: start: 20080528, end: 20080528
  2. SANDOSTATIN LAR [Suspect]
     Indication: CARCINOID TUMOUR
     Dosage: 20 MG, ONCE PER 3 WEEKS
     Dates: start: 20050519

REACTIONS (3)
  - INFECTIOUS PERITONITIS [None]
  - METASTATIC CARCINOID TUMOUR [None]
  - OMENTUM NEOPLASM [None]
